FAERS Safety Report 6516721-0 (Version None)
Quarter: 2009Q4

REPORT INFORMATION
  Report Type: 
  Country: None (occurrence: None)
  Receive Date: 20091223
  Receipt Date: 20091217
  Transmission Date: 20100525
  Serious: Yes (Other)
  Sender: FDA-Public Use
  Company Number: GB-TEVA-218425ISR

PATIENT
  Sex: Female

DRUGS (3)
  1. PLAN B [Suspect]
     Dates: start: 20091101
  2. MIRTAZAPINE [Concomitant]
  3. BETAHISTINE [Concomitant]

REACTIONS (3)
  - DIZZINESS [None]
  - MANIA [None]
  - VOMITING [None]
